FAERS Safety Report 6146282-X (Version None)
Quarter: 2009Q2

REPORT INFORMATION
  Report Type: 
  Country: None (occurrence: None)
  Receive Date: 20090403
  Receipt Date: 20090318
  Transmission Date: 20091009
  Serious: Yes (Hospitalization, Other)
  Sender: FDA-Public Use
  Company Number: M-09-0258

PATIENT
  Sex: Male

DRUGS (1)
  1. DIVALPROEX SODIUM [Suspect]
     Indication: CONVULSION
     Dosage: PO
     Route: 048
     Dates: start: 20090101, end: 20090201

REACTIONS (2)
  - FATIGUE [None]
  - STATUS EPILEPTICUS [None]
